FAERS Safety Report 9782016 (Version 3)
Quarter: 2014Q4

REPORT INFORMATION
  Report Type: Report from Study
  Country: NL (occurrence: NL)
  Receive Date: 20131225
  Receipt Date: 20141028
  Transmission Date: 20150529
  Serious: Yes (Other)
  Sender: FDA-Public Use
  Company Number: NL-009507513-1312NLD010101

PATIENT
  Age: 72 Year
  Sex: Male
  Weight: 93 kg

DRUGS (5)
  1. AMLODIPINE [Suspect]
     Active Substance: AMLODIPINE BESYLATE
     Dosage: TOTAL DAILY DOSE 5
     Route: 048
     Dates: start: 20060122
  2. ASPIRIN. [Suspect]
     Active Substance: ASPIRIN
     Dosage: TOTAL DAILY DOSE 80
     Route: 048
     Dates: start: 19880905
  3. ESOMEPRAZOLE MAGNESIUM. [Suspect]
     Active Substance: ESOMEPRAZOLE MAGNESIUM
     Dosage: TOTAL DAILY DOSE 20
     Route: 048
     Dates: start: 20061228
  4. FINASTERIDE. [Suspect]
     Active Substance: FINASTERIDE
     Dosage: TOTAL DAILY DOSE 5
     Route: 048
     Dates: start: 20051025
  5. SIMVASTATIN. [Suspect]
     Active Substance: SIMVASTATIN
     Indication: ACUTE CORONARY SYNDROME
     Dosage: UNK
     Route: 048
     Dates: start: 20061122

REACTIONS (1)
  - Basal cell carcinoma [Recovered/Resolved]

NARRATIVE: CASE EVENT DATE: 20110117
